FAERS Safety Report 19782902 (Version 1)
Quarter: 2021Q3

REPORT INFORMATION
  Report Type: Spontaneous
  Country: US (occurrence: US)
  Receive Date: 20210901
  Receipt Date: 20210901
  Transmission Date: 20211014
  Serious: Yes (Death)
  Sender: FDA-Public Use
  Company Number: None

PATIENT
  Age: 77 Year
  Sex: Female

DRUGS (1)
  1. CAPECITABINE TAB 500MG [Suspect]
     Active Substance: CAPECITABINE
     Dosage: 4 TABLETS IN A.M. AND 3 BID ORAL
     Route: 048
     Dates: start: 202108

REACTIONS (1)
  - Death [None]

NARRATIVE: CASE EVENT DATE: 20210817
